FAERS Safety Report 14976645 (Version 1)
Quarter: 2018Q2

REPORT INFORMATION
  Report Type: Report from Study
  Country: US (occurrence: US)
  Receive Date: 20180605
  Receipt Date: 20180605
  Transmission Date: 20180711
  Serious: Yes (Hospitalization)
  Sender: FDA-Public Use
  Company Number: US-ACTELION-A-US2018-173260

PATIENT
  Age: 5 Year
  Sex: Female

DRUGS (1)
  1. BOSENTAN TABLET 32 MG PED US [Suspect]
     Active Substance: BOSENTAN
     Indication: PULMONARY HYPERTENSION
     Dosage: 16 MG, BID
     Route: 049

REACTIONS (4)
  - Gastroenteritis viral [Unknown]
  - International normalised ratio increased [Unknown]
  - Respiratory tract infection viral [Unknown]
  - Coagulation time prolonged [Unknown]
